FAERS Safety Report 9842550 (Version 2)
Quarter: 2014Q1

REPORT INFORMATION
  Report Type: Spontaneous
  Country: US (occurrence: US)
  Receive Date: 20140124
  Receipt Date: 20140124
  Transmission Date: 20141002
  Serious: No
  Sender: FDA-Public Use
  Company Number: US-GILEAD-2011-0045481

PATIENT
  Age: 83 Year
  Sex: Male

DRUGS (2)
  1. RANEXA [Suspect]
     Indication: ANGINA UNSTABLE
     Dosage: 500 MG, BID
     Route: 048
     Dates: start: 20111011
  2. RANEXA [Suspect]
     Dosage: 250 MG, BID
     Route: 048
     Dates: start: 20111010

REACTIONS (1)
  - Dizziness [Not Recovered/Not Resolved]
